FAERS Safety Report 8318036-7 (Version None)
Quarter: 2012Q2

REPORT INFORMATION
  Report Type: 
  Country: None (occurrence: None)
  Receive Date: 20120427
  Receipt Date: 20120419
  Transmission Date: 20120825
  Serious: Yes (Other)
  Sender: FDA-Public Use
  Company Number: US-BAYER-2012-038363

PATIENT
  Sex: Female

DRUGS (1)
  1. CIPROFLOXACIN HCL [Suspect]
     Indication: BETA HAEMOLYTIC STREPTOCOCCAL INFECTION

REACTIONS (1)
  - BETA HAEMOLYTIC STREPTOCOCCAL INFECTION [None]
